FAERS Safety Report 9867681 (Version 2)
Quarter: 2014Q1

REPORT INFORMATION
  Report Type: Report from Study
  Country: US (occurrence: US)
  Receive Date: 20140204
  Receipt Date: 20140204
  Transmission Date: 20141002
  Serious: Yes (Hospitalization)
  Sender: FDA-Public Use
  Company Number: US-SANOFI-AVENTIS-2011SA034624

PATIENT
  Age: 53 Year
  Sex: Female
  Weight: 62.7 kg

DRUGS (30)
  1. TERIFLUNOMIDE [Suspect]
     Indication: MULTIPLE SCLEROSIS RELAPSE
     Route: 048
     Dates: start: 20100225, end: 20120103
  2. TERIFLUNOMIDE [Suspect]
     Indication: MULTIPLE SCLEROSIS RELAPSE
     Route: 048
     Dates: start: 20120103
  3. XANAX [Concomitant]
     Route: 048
     Dates: start: 200904
  4. XANAX [Concomitant]
     Route: 048
     Dates: start: 20101016
  5. ASPIRIN [Concomitant]
     Route: 048
     Dates: start: 200809
  6. FIORICET [Concomitant]
     Route: 048
     Dates: start: 200811
  7. PROVIGIL [Concomitant]
     Route: 048
     Dates: start: 200905
  8. GINKGO BILOBA [Concomitant]
     Route: 048
     Dates: start: 200902
  9. VITAMIN B [Concomitant]
     Dosage: DOSE:1 UNIT(S)
     Route: 048
     Dates: start: 200902
  10. VITAMIN D [Concomitant]
     Route: 048
     Dates: start: 200902
  11. MULTIVITAMINS [Concomitant]
     Route: 048
     Dates: start: 200902
  12. CYCLOBENZAPRINE [Concomitant]
     Route: 048
     Dates: start: 20100125
  13. VICODIN [Concomitant]
     Route: 048
     Dates: start: 20100105
  14. VICODIN [Concomitant]
     Route: 048
     Dates: start: 20100914
  15. HYDROMORPHONE [Concomitant]
     Route: 048
     Dates: start: 20100213
  16. HYDROMORPHONE [Concomitant]
     Route: 048
     Dates: start: 20100401
  17. GABAPENTIN [Concomitant]
     Route: 048
     Dates: start: 20100213
  18. CEPHALEXIN [Concomitant]
     Dosage: DOSE:3 UNIT(S)
     Route: 048
     Dates: start: 20100326
  19. CELEXA [Concomitant]
     Route: 048
     Dates: start: 20100401
  20. CLONIDINE [Concomitant]
     Route: 048
     Dates: start: 20100523, end: 20110920
  21. ZOCOR [Concomitant]
     Route: 048
     Dates: start: 200807
  22. BACLOFEN [Concomitant]
     Route: 048
     Dates: start: 20101103
  23. PHENERGAN [Concomitant]
     Route: 048
     Dates: start: 20101205
  24. ZOFRAN [Concomitant]
     Route: 048
     Dates: start: 20101205
  25. HYDROXYZINE [Concomitant]
     Route: 048
     Dates: start: 20101205
  26. DIPHENHYDRAMINE HYDROCHLORIDE [Concomitant]
     Route: 048
     Dates: start: 20110101
  27. LIDODERM [Concomitant]
     Route: 062
     Dates: start: 20110329
  28. ECOTRIN [Concomitant]
  29. LISINOPRIL [Concomitant]
     Route: 065
  30. METOPROLOL [Concomitant]
     Route: 048
     Dates: start: 20110509, end: 20110707

REACTIONS (5)
  - Blood pressure fluctuation [Recovered/Resolved]
  - Blood pressure fluctuation [Recovered/Resolved]
  - Blood pressure fluctuation [Recovered/Resolved]
  - Blood pressure fluctuation [Recovered/Resolved]
  - Bronchitis [Recovered/Resolved]
